FAERS Safety Report 19944982 (Version 3)
Quarter: 2021Q4

REPORT INFORMATION
  Report Type: Spontaneous
  Country: JP (occurrence: JP)
  Receive Date: 20211012
  Receipt Date: 20211215
  Transmission Date: 20220303
  Serious: Yes (Other)
  Sender: FDA-Public Use
  Company Number: JP-MERCK HEALTHCARE KGAA-9269864

PATIENT
  Age: 54 Year
  Sex: Male

DRUGS (3)
  1. ERBITUX [Suspect]
     Active Substance: CETUXIMAB
     Indication: Head and neck cancer
     Dosage: UNK UNK, UNKNOWN
     Route: 041
  2. PACLITAXEL [Concomitant]
     Active Substance: PACLITAXEL
     Indication: Head and neck cancer
     Dosage: UNK
  3. CARBOPLATIN [Concomitant]
     Active Substance: CARBOPLATIN
     Indication: Head and neck cancer
     Dosage: UNK

REACTIONS (7)
  - Superficial vein thrombosis [Recovered/Resolved]
  - Poor peripheral circulation [Recovered/Resolved]
  - Postoperative wound complication [Not Recovered/Not Resolved]
  - Skin graft detachment [Unknown]
  - Surgery [Unknown]
  - Skin disorder [Unknown]
  - Dermatitis acneiform [Recovering/Resolving]
